FAERS Safety Report 4522004-0 (Version None)
Quarter: 2004Q4

REPORT INFORMATION
  Report Type: 
  Country: None (occurrence: None)
  Receive Date: 20041208
  Receipt Date: 20041124
  Transmission Date: 20050328
  Serious: Yes (Death)
  Sender: FDA-Public Use
  Company Number: 20041100491

PATIENT
  Age: 46 Year
  Sex: Male

DRUGS (5)
  1. PHENERGAN [Suspect]
     Indication: BACK PAIN
     Dates: start: 20040515, end: 20040515
  2. DURAGESIC [Suspect]
     Indication: PAIN
     Dosage: 1 OTHER PT
     Dates: start: 20040515, end: 20040516
  3. MORPHINE [Suspect]
     Indication: PAIN
     Dates: start: 20040515, end: 20040515
  4. DILAUDID [Suspect]
     Indication: BACK PAIN
     Dates: start: 20040515, end: 20040515
  5. VICODIN (ACETAMINOPHEN AND HYDROCODONE BITARTRATE) [Concomitant]

REACTIONS (7)
  - CARDIAC ARREST [None]
  - COMA [None]
  - MULTI-ORGAN FAILURE [None]
  - OPIATES POSITIVE [None]
  - RESPIRATORY DEPRESSION [None]
  - RHABDOMYOLYSIS [None]
  - SOMNOLENCE [None]
